FAERS Safety Report 14197890 (Version 1)
Quarter: 2017Q4

REPORT INFORMATION
  Report Type: Spontaneous
  Country: US (occurrence: US)
  Receive Date: 20171117
  Receipt Date: 20171117
  Transmission Date: 20180321
  Serious: No
  Sender: FDA-Public Use
  Company Number: US-ELI_LILLY_AND_COMPANY-US201711002770

PATIENT
  Sex: Female

DRUGS (2)
  1. FORTEO [Suspect]
     Active Substance: TERIPARATIDE
     Indication: PRODUCT USED FOR UNKNOWN INDICATION
     Dosage: UNK, UNKNOWN
     Route: 065
     Dates: start: 201601
  2. VITAMIN D [Concomitant]
     Active Substance: CHOLECALCIFEROL
     Indication: OSTEOPOROSIS

REACTIONS (6)
  - Depression [Recovered/Resolved]
  - Incorrect drug administration duration [Unknown]
  - Spinal pain [Not Recovered/Not Resolved]
  - Drug dose omission [Unknown]
  - Dementia Alzheimer^s type [Recovered/Resolved]
  - Arthritis [Not Recovered/Not Resolved]
